FAERS Safety Report 16344798 (Version 1)
Quarter: 2019Q2

REPORT INFORMATION
  Report Type: Spontaneous
  Country: US (occurrence: US)
  Receive Date: 20190522
  Receipt Date: 20190522
  Transmission Date: 20190711
  Serious: Yes (Other)
  Sender: FDA-Public Use
  Company Number: US-PRINSTON PHARMACEUTICAL INC.-2019PRN00498

PATIENT
  Sex: Female

DRUGS (1)
  1. CLONAZEPAM. [Suspect]
     Active Substance: CLONAZEPAM

REACTIONS (7)
  - Nausea [Unknown]
  - Palpitations [Unknown]
  - Diarrhoea [Unknown]
  - Blood pressure increased [Unknown]
  - Withdrawal syndrome [Unknown]
  - Hyperhidrosis [Unknown]
  - Sticky skin [Unknown]

NARRATIVE: CASE EVENT DATE: 201905
